FAERS Safety Report 8604371-1 (Version None)
Quarter: 2012Q3

REPORT INFORMATION
  Report Type: 
  Country: None (occurrence: None)
  Receive Date: 20120820
  Receipt Date: 20120808
  Transmission Date: 20120928
  Serious: Yes (Hospitalization)
  Sender: FDA-Public Use
  Company Number: US-BAYER-2012-081371

PATIENT
  Age: 30 Year
  Sex: Female
  Weight: 97.052 kg

DRUGS (13)
  1. DROSPIRENONE AND ETHINYL ESTRADIOL [Suspect]
  2. GENTAMICIN [Concomitant]
     Route: 042
  3. YASMIN [Suspect]
  4. HYDROCODONE BITARTRATE AND ACETAMINOPHEN [Concomitant]
     Dosage: 5/50 MG
  5. HYDROCHLOROTHIAZIDE [Concomitant]
     Dosage: 25 MG, UNK
  6. POTASSIUM CHLORIDE [Concomitant]
     Dosage: 10 MEQ, UNK
  7. FLUCONAZOLE [Concomitant]
     Dosage: 150 MG, UNK
  8. PANTOPRAZOLE [Concomitant]
     Dosage: 40 MG, UNK
  9. KLOR-CON M20 [Concomitant]
  10. CIPROFLOXACIN [Concomitant]
     Dosage: 500 MG, UNK
  11. PROPOXYPHENE NAPSYLATE W/ ACETAMINOPHEN [Concomitant]
     Dosage: 100-650 TAB MG
  12. KEPPRA [Concomitant]
     Indication: CONVULSION PROPHYLAXIS
     Dosage: 1000 MG, BID
  13. METOPROLOL TARTRATE [Concomitant]
     Dosage: 50 MG, UNK

REACTIONS (2)
  - INTRACRANIAL VENOUS SINUS THROMBOSIS [None]
  - CEREBRAL HAEMORRHAGE [None]
